FAERS Safety Report 12438310 (Version 8)
Quarter: 2016Q4

REPORT INFORMATION
  Report Type: Spontaneous
  Country: US (occurrence: US)
  Receive Date: 20160606
  Receipt Date: 20161122
  Transmission Date: 20170207
  Serious: No
  Sender: FDA-Public Use
  Company Number: US-GLAXOSMITHKLINE-US2016070975

PATIENT
  Age: 85 Year
  Sex: Male
  Weight: 71.66 kg

DRUGS (8)
  1. LUTEIN [Concomitant]
     Active Substance: LUTEIN
  2. ALPHA LIPOIC ACID [Concomitant]
     Active Substance: .ALPHA.-LIPOIC ACID
  3. AVODART [Suspect]
     Active Substance: DUTASTERIDE
     Indication: PROSTATOMEGALY
     Dosage: 0.5 MG, 1D
     Route: 048
     Dates: start: 201504, end: 201601
  4. RESERVITAL [Concomitant]
  5. RAPAFLO [Concomitant]
     Active Substance: SILODOSIN
  6. ASPIRIN (BABY) [Concomitant]
     Active Substance: ASPIRIN
  7. FISH OIL [Concomitant]
     Active Substance: FISH OIL
  8. VITAMIN C [Concomitant]
     Active Substance: ASCORBIC ACID

REACTIONS (5)
  - Gynaecomastia [Not Recovered/Not Resolved]
  - Breast tenderness [Recovering/Resolving]
  - Nipple disorder [Unknown]
  - Breast pain [Not Recovered/Not Resolved]
  - Nipple pain [Recovering/Resolving]

NARRATIVE: CASE EVENT DATE: 201601
